FAERS Safety Report 8900442 (Version 1)
Quarter: 2012Q4

REPORT INFORMATION
  Report Type: 
  Country: US (occurrence: US)
  Receive Date: 20121108
  Receipt Date: 20121108
  Transmission Date: 20130627
  Serious: No
  Sender: FDA-Public Use
  Company Number: US-AMGEN-USASP2012038388

PATIENT
  Age: 63 Year
  Sex: Female
  Weight: 85.71 kg

DRUGS (4)
  1. ENBREL [Suspect]
     Indication: PRODUCT USED FOR UNKNOWN INDICATION
     Dosage: 50 mg, qwk
     Route: 058
     Dates: end: 20120619
  2. METHOTREXATE [Concomitant]
     Dosage: 2.5 mg, UNK
  3. SYNTHROID [Concomitant]
     Dosage: 50 mug, UNK
  4. HUMIRA [Concomitant]
     Dosage: UNK
     Dates: start: 20120501

REACTIONS (1)
  - Sinusitis [Recovered/Resolved]
